FAERS Safety Report 25665596 (Version 1)
Quarter: 2025Q3

REPORT INFORMATION
  Report Type: Spontaneous
  Country: GB (occurrence: GB)
  Receive Date: 20250811
  Receipt Date: 20250811
  Transmission Date: 20251021
  Serious: Yes (Hospitalization, Other)
  Sender: SANOFI AVENTIS
  Company Number: GB-SA-2025SA204136

PATIENT
  Age: 74 Year
  Sex: Female

DRUGS (1)
  1. KEVZARA [Suspect]
     Active Substance: SARILUMAB
     Indication: Rheumatoid arthritis
     Route: 058
     Dates: start: 202001, end: 20250613

REACTIONS (3)
  - Pneumonia [Unknown]
  - Pulmonary oedema [Not Recovered/Not Resolved]
  - Pleurisy [Unknown]

NARRATIVE: CASE EVENT DATE: 20250101
